FAERS Safety Report 10025203 (Version 2)
Quarter: 2014Q1

REPORT INFORMATION
  Report Type: Spontaneous
  Country: US (occurrence: US)
  Receive Date: 20140320
  Receipt Date: 20140320
  Transmission Date: 20141002
  Serious: Yes (Hospitalization)
  Sender: FDA-Public Use
  Company Number: US-BRISTOL-MYERS SQUIBB COMPANY-19189547

PATIENT
  Age: 58 Year
  Sex: Male
  Weight: 170.06 kg

DRUGS (12)
  1. ONGLYZA TABS [Suspect]
     Indication: DIABETES MELLITUS
     Dates: start: 2012
  2. LISINOPRIL [Suspect]
     Dates: start: 1993
  3. SEROQUEL [Suspect]
     Indication: BIPOLAR DISORDER
     Dosage: LAST DOSE 03AUG2013.?DOSE REDUCED TO 200MG?EXTENDED RELEASE
     Dates: start: 2009
  4. NEXIUM [Suspect]
     Indication: GASTROOESOPHAGEAL REFLUX DISEASE
     Dates: start: 2003
  5. ACTOS [Concomitant]
     Indication: DIABETES MELLITUS
     Dates: start: 1988
  6. SIMVASTATIN [Concomitant]
     Dates: start: 1988
  7. METOPROLOL TARTRATE [Concomitant]
     Indication: CARDIAC DISORDER
     Dates: start: 2011
  8. METFORMIN [Concomitant]
     Indication: DIABETES MELLITUS
     Dates: start: 1993
  9. LEXAPRO [Concomitant]
     Indication: DEPRESSION
     Dates: start: 1983
  10. GLIPIZIDE [Concomitant]
     Indication: DIABETES MELLITUS
  11. XANAX [Concomitant]
     Indication: ANXIETY
     Dates: start: 1983
  12. LANTUS [Concomitant]
     Dosage: 1DF: 30UNITS
     Dates: start: 2010

REACTIONS (4)
  - Arthropathy [Unknown]
  - Anxiety [Unknown]
  - Panic attack [Unknown]
  - Mood swings [Unknown]
